FAERS Safety Report 13155217 (Version 1)
Quarter: 2017Q1

REPORT INFORMATION
  Report Type: Spontaneous
  Country: US (occurrence: US)
  Receive Date: 20170126
  Receipt Date: 20170126
  Transmission Date: 20170428
  Serious: No
  Sender: FDA-Public Use
  Company Number: US-BRACCO-014043

PATIENT
  Sex: Male

DRUGS (1)
  1. VOLUMEN [Suspect]
     Active Substance: BARIUM SULFATE
     Indication: COMPUTERISED TOMOGRAM
     Route: 048

REACTIONS (2)
  - Malaise [Unknown]
  - Nausea [Unknown]
